FAERS Safety Report 5549654-7 (Version None)
Quarter: 2007Q4

REPORT INFORMATION
  Report Type: 
  Country: None (occurrence: None)
  Receive Date: 20071128
  Receipt Date: 20070806
  Transmission Date: 20080405
  Serious: Yes (Other)
  Sender: FDA-Public Use
  Company Number: 2007065637

PATIENT

DRUGS (1)
  1. LIPITOR [Suspect]
     Dosage: (10 MG), OVER A YEAR

REACTIONS (1)
  - HEPATIC ENZYME INCREASED [None]
